FAERS Safety Report 15201278 (Version 1)
Quarter: 2018Q4

REPORT INFORMATION
  Report Type: Spontaneous
  Country: US (occurrence: US)
  Receive Date: 20180726
  Receipt Date: 20180726
  Transmission Date: 20190204
  Serious: Yes (Hospitalization, Other)
  Sender: FDA-Public Use
  Company Number: US-ELI_LILLY_AND_COMPANY-US201807007093

PATIENT
  Age: 53 Year
  Sex: Female

DRUGS (3)
  1. HUMALOG [Suspect]
     Active Substance: INSULIN LISPRO
     Indication: TYPE 1 DIABETES MELLITUS
     Dosage: UNK UNK, UNKNOWN
     Route: 065
     Dates: start: 1991
  2. HUMALOG [Suspect]
     Active Substance: INSULIN LISPRO
     Dosage: 150 U, 3/W
     Route: 065
  3. INSULINA BEEF/PORK REGULAR [Suspect]
     Active Substance: INSULIN BEEF/PORK
     Indication: TYPE 1 DIABETES MELLITUS
     Dosage: UNK, UNKNOWN
     Route: 065
     Dates: start: 197805

REACTIONS (17)
  - Headache [Recovering/Resolving]
  - Paraesthesia [Not Recovered/Not Resolved]
  - Blood disorder [Unknown]
  - Blood glucose decreased [Recovered/Resolved]
  - Memory impairment [Not Recovered/Not Resolved]
  - Renal disorder [Unknown]
  - Sleep apnoea syndrome [Not Recovered/Not Resolved]
  - Stress [Unknown]
  - Fatigue [Unknown]
  - Coma [Recovering/Resolving]
  - Blood glucose increased [Recovering/Resolving]
  - Loss of consciousness [Recovering/Resolving]
  - Loss of consciousness [Recovering/Resolving]
  - Basedow^s disease [Not Recovered/Not Resolved]
  - Oxygen saturation decreased [Unknown]
  - Blood glucose abnormal [Unknown]
  - Exposure during pregnancy [Unknown]

NARRATIVE: CASE EVENT DATE: 20180214
